FAERS Safety Report 16692214 (Version 2)
Quarter: 2019Q3

REPORT INFORMATION
  Report Type: Spontaneous
  Country: JP (occurrence: JP)
  Receive Date: 20190812
  Receipt Date: 20190826
  Transmission Date: 20191004
  Serious: Yes (Hospitalization)
  Sender: FDA-Public Use
  Company Number: PHJP2019JP010238

PATIENT
  Age: 67 Year
  Sex: Male

DRUGS (7)
  1. EQUA TAB [Suspect]
     Active Substance: VILDAGLIPTIN
     Dosage: UNK
     Route: 048
     Dates: start: 20180607, end: 20190326
  2. PRAZAXA [Concomitant]
     Active Substance: DABIGATRAN ETEXILATE MESYLATE
     Indication: ATRIAL FIBRILLATION
     Dosage: UNK
     Route: 065
  3. EQUA TAB [Suspect]
     Active Substance: VILDAGLIPTIN
     Indication: TYPE 2 DIABETES MELLITUS
     Dosage: UNK
     Route: 048
     Dates: end: 20180406
  4. EQUMET [Suspect]
     Active Substance: METFORMIN HYDROCHLORIDE\VILDAGLIPTIN
     Dosage: METFORMIN 500 MG/VILDAGLIPTIN 50 MG, EQUMET HD IN THE NIGHT, QD
     Route: 048
     Dates: start: 20190327, end: 20190626
  5. EQUMET [Suspect]
     Active Substance: METFORMIN HYDROCHLORIDE\VILDAGLIPTIN
     Indication: TYPE 2 DIABETES MELLITUS
     Dosage: METFORMIN 250 MG/VILDAGLIPTIN 50 MG, UNK
     Route: 048
     Dates: start: 20180407, end: 20180606
  6. EQUMET [Suspect]
     Active Substance: METFORMIN HYDROCHLORIDE\VILDAGLIPTIN
     Dosage: METFORMIN 500 MG/VILDAGLIPTIN 50 MG, EQUMET HD IN THE MORNING AND EVENING, BID
     Route: 048
     Dates: start: 20190627
  7. EQUA TAB [Suspect]
     Active Substance: VILDAGLIPTIN
     Dosage: EQUA IN THE MORNING, QD
     Route: 048
     Dates: start: 20190327, end: 20190626

REACTIONS (3)
  - Osteoarthritis [Unknown]
  - Weight decreased [Unknown]
  - Diarrhoea [Recovered/Resolved]

NARRATIVE: CASE EVENT DATE: 20180607
